FAERS Safety Report 5975697-5 (Version None)
Quarter: 2008Q4

REPORT INFORMATION
  Report Type: 
  Country: None (occurrence: None)
  Receive Date: 20081202
  Receipt Date: 20081126
  Transmission Date: 20090506
  Serious: Yes (Hospitalization, Other)
  Sender: FDA-Public Use
  Company Number: PHMT2006CA01389

PATIENT
  Sex: Male

DRUGS (10)
  1. SANDOSTATIN LAR [Suspect]
     Indication: CARCINOID TUMOUR
     Dosage: 20 MG, QMO
     Dates: start: 20050630
  2. SANDOSTATIN LAR [Suspect]
     Dosage: 30 MG, QMO
     Route: 030
  3. FOLIC ACID [Concomitant]
  4. GABAPENTIN [Concomitant]
  5. HYDROMORPHONE HCL [Concomitant]
  6. HYDROMORPHONE HCL [Concomitant]
  7. LIPITOR [Concomitant]
  8. METOPROLOL [Concomitant]
  9. NAPROXEN [Concomitant]
  10. PLAVIX [Concomitant]

REACTIONS (6)
  - CATHETER RELATED COMPLICATION [None]
  - NEPHROSTOMY [None]
  - NEPHROSTOMY TUBE REMOVAL [None]
  - RENAL FAILURE [None]
  - SURGERY [None]
  - URETERAL STENT INSERTION [None]
